FAERS Safety Report 6041752-7 (Version None)
Quarter: 2009Q1

REPORT INFORMATION
  Report Type: 
  Country: None (occurrence: None)
  Receive Date: 20090116
  Receipt Date: 20090109
  Transmission Date: 20090719
  Serious: Yes (Other)
  Sender: FDA-Public Use
  Company Number: US-PFIZER INC-2008097925

PATIENT
  Sex: Male
  Weight: 62 kg

DRUGS (4)
  1. LYRICA [Suspect]
     Indication: NEUROPATHY PERIPHERAL
     Dates: start: 20081106
  2. SYNTHROID [Concomitant]
  3. SIMVASTATIN [Concomitant]
  4. NEXIUM [Concomitant]

REACTIONS (1)
  - WEIGHT DECREASED [None]
